FAERS Safety Report 4450443-5 (Version None)
Quarter: 2004Q3

REPORT INFORMATION
  Report Type: 
  Country: None (occurrence: None)
  Receive Date: 20040802
  Receipt Date: 20040123
  Transmission Date: 20050211
  Serious: Yes (Hospitalization)
  Sender: FDA-Public Use
  Company Number: US-SHR-04-020256

PATIENT
  Age: 52 Year
  Sex: Female

DRUGS (1)
  1. MAGNEVIST [Suspect]
     Indication: NUCLEAR MAGNETIC RESONANCE IMAGING
     Dosage: 20 MI, 1 DOSE, INTRAVENOUS
     Route: 042
     Dates: start: 20040123, end: 20040123

REACTIONS (3)
  - DYSPHAGIA [None]
  - OROPHARYNGEAL SWELLING [None]
  - THROAT IRRITATION [None]
